FAERS Safety Report 11118626 (Version 2)
Quarter: 2015Q2

REPORT INFORMATION
  Report Type: Spontaneous
  Country: IL (occurrence: IL)
  Receive Date: 20150518
  Receipt Date: 20150519
  Transmission Date: 20150821
  Serious: Yes (Hospitalization, Other)
  Sender: FDA-Public Use
  Company Number: IL-ROCHE-1566738

PATIENT
  Age: 75 Year
  Sex: Male

DRUGS (3)
  1. CHLORAMBUCIL [Suspect]
     Active Substance: CHLORAMBUCIL
     Indication: CHRONIC LYMPHOCYTIC LEUKAEMIA
     Route: 065
     Dates: start: 201504
  2. OBINUTUZUMAB [Suspect]
     Active Substance: OBINUTUZUMAB
     Dosage: SECOND INFUSION ON AN UNKNOWN DATE
     Route: 042
  3. OBINUTUZUMAB [Suspect]
     Active Substance: OBINUTUZUMAB
     Indication: CHRONIC LYMPHOCYTIC LEUKAEMIA
     Route: 042
     Dates: start: 201504

REACTIONS (2)
  - Hyperglycaemia [Unknown]
  - Chills [Recovered/Resolved]

NARRATIVE: CASE EVENT DATE: 201505
